FAERS Safety Report 24552997 (Version 4)
Quarter: 2025Q1

REPORT INFORMATION
  Report Type: Report from Study
  Country: DE (occurrence: DE)
  Receive Date: 20241027
  Receipt Date: 20250219
  Transmission Date: 20250409
  Serious: Yes (Hospitalization)
  Sender: ABBVIE
  Company Number: DE-ABBVIE-5954778

PATIENT
  Age: 69 Year
  Sex: Male

DRUGS (2)
  1. FOSCARBIDOPA\FOSLEVODOPA [Suspect]
     Active Substance: FOSCARBIDOPA\FOSLEVODOPA
     Indication: Parkinson^s disease
     Route: 058
     Dates: start: 20240603
  2. FOSCARBIDOPA\FOSLEVODOPA [Suspect]
     Active Substance: FOSCARBIDOPA\FOSLEVODOPA
     Route: 058
     Dates: start: 20240527

REACTIONS (8)
  - Dermatitis [Unknown]
  - Abdominal abscess [Recovered/Resolved]
  - Skin infection [Unknown]
  - Inflammatory marker increased [Recovering/Resolving]
  - Infusion site inflammation [Recovering/Resolving]
  - Pyrexia [Recovering/Resolving]
  - Dermatitis contact [Unknown]
  - Sepsis [Unknown]

NARRATIVE: CASE EVENT DATE: 20240101
